FAERS Safety Report 9742676 (Version 1)
Quarter: 2013Q4

REPORT INFORMATION
  Report Type: Spontaneous
  Country: US (occurrence: US)
  Receive Date: 20131210
  Receipt Date: 20131210
  Transmission Date: 20140711
  Serious: No
  Sender: FDA-Public Use
  Company Number: US-GILEAD-2009-0025338

PATIENT
  Age: 71 Year
  Sex: Female

DRUGS (4)
  1. LETAIRIS [Suspect]
     Indication: PULMONARY ARTERIAL HYPERTENSION
     Route: 048
     Dates: start: 20090706, end: 20091026
  2. PAXIL [Concomitant]
  3. POTASSIUM [Concomitant]
  4. ENABLEX [Concomitant]

REACTIONS (1)
  - Epistaxis [Recovered/Resolved]
